FAERS Safety Report 6649055-4 (Version None)
Quarter: 2010Q1

REPORT INFORMATION
  Report Type: 
  Country: None (occurrence: None)
  Receive Date: 20100324
  Receipt Date: 20100312
  Transmission Date: 20100710
  Serious: Yes (Hospitalization)
  Sender: FDA-Public Use
  Company Number: US-JNJFOC-20100304212

PATIENT
  Age: 56 Year
  Sex: Female
  Weight: 103.42 kg

DRUGS (5)
  1. TYLENOL [Suspect]
     Indication: ARTHROPATHY
     Dosage: TAKEN FOR 1 MONTH
     Route: 048
  2. TYLENOL [Suspect]
     Indication: BACK DISORDER
     Dosage: TAKEN FOR 1 MONTH
     Route: 048
  3. ST. JOSEPH ENTERIC COATED [Suspect]
     Indication: PROPHYLAXIS
     Route: 048
  4. ANTIHYPERTENSIVES [Concomitant]
  5. IMMUNOSUPPRESSANTS [Concomitant]

REACTIONS (8)
  - DIARRHOEA [None]
  - GASTRIC DISORDER [None]
  - GASTROINTESTINAL DISORDER [None]
  - HEADACHE [None]
  - MUSCLE SPASMS [None]
  - NAUSEA [None]
  - PRODUCT QUALITY ISSUE [None]
  - VOMITING [None]
